FAERS Safety Report 4797221-5 (Version None)
Quarter: 2005Q3

REPORT INFORMATION
  Report Type: 
  Country: None (occurrence: None)
  Receive Date: 20050916
  Receipt Date: 20050711
  Transmission Date: 20060218
  Serious: Yes (Hospitalization, Other)
  Sender: FDA-Public Use
  Company Number: US-JNJFOC-20050402818

PATIENT
  Age: 38 Year
  Sex: Female
  Weight: 72.5755 kg

DRUGS (12)
  1. TOPAMAX [Suspect]
     Indication: HEADACHE
     Dosage: 25 MG, 3 IN 1 DAY, ORAL
     Route: 048
     Dates: start: 20040929, end: 20050401
  2. ULTRAM [Suspect]
     Indication: PAIN
     Dosage: 4 IN 1 DAY
  3. TOPAMAX [Concomitant]
  4. SOMA [Concomitant]
  5. OXYCODONE (OXYCODONE) UNSPECIFIED [Concomitant]
  6. PROZAC [Concomitant]
  7. VALIUM [Concomitant]
  8. LEVOTHYROXINE SODIUM [Concomitant]
  9. NATURAL PROGESTERONE (PROGESTOGENS) [Concomitant]
  10. ESTRADIOL [Concomitant]
  11. AMBIEN [Concomitant]
  12. HYDROCODONE/APAP (VICODIN) [Concomitant]

REACTIONS (1)
  - PETIT MAL EPILEPSY [None]
